FAERS Safety Report 9700768 (Version 1)
Quarter: 2013Q4

REPORT INFORMATION
  Report Type: Spontaneous
  Country: US (occurrence: US)
  Receive Date: 20131121
  Receipt Date: 20131121
  Transmission Date: 20140711
  Serious: Yes (Death)
  Sender: FDA-Public Use
  Company Number: PHEH2013US024223

PATIENT
  Sex: 0

DRUGS (1)
  1. ILARIS [Suspect]
     Indication: OFF LABEL USE

REACTIONS (1)
  - Death [Fatal]
